FAERS Safety Report 17769290 (Version 1)
Quarter: 2020Q2

REPORT INFORMATION
  Report Type: Spontaneous
  Country: US (occurrence: US)
  Receive Date: 20200512
  Receipt Date: 20200512
  Transmission Date: 20200714
  Serious: No
  Sender: FDA-Public Use
  Company Number: US-TEVA-2020-US-1233473

PATIENT
  Sex: Male

DRUGS (2)
  1. TESTOSTERONE TEVA [Suspect]
     Active Substance: TESTOSTERONE
     Route: 065
     Dates: start: 202003
  2. TESTOSTERONE TEVA [Suspect]
     Active Substance: TESTOSTERONE
     Dosage: TOPICAL SOLUTIONS
     Route: 061

REACTIONS (3)
  - Product substitution issue [Unknown]
  - Dyspnoea exertional [Not Recovered/Not Resolved]
  - Dyspnoea [Not Recovered/Not Resolved]
